FAERS Safety Report 11654340 (Version 1)
Quarter: 2015Q4

REPORT INFORMATION
  Report Type: Spontaneous
  Country: US (occurrence: None)
  Receive Date: 20151022
  Receipt Date: 20151022
  Transmission Date: 20160304
  Serious: No
  Sender: FDA-Public Use
  Company Number: None

PATIENT
  Age: 33 Year
  Sex: Female
  Weight: 57.61 kg

DRUGS (2)
  1. ADDERALL [Concomitant]
     Active Substance: AMPHETAMINE ASPARTATE\AMPHETAMINE SULFATE\DEXTROAMPHETAMINE SACCHARATE\DEXTROAMPHETAMINE SULFATE
  2. TOPIRAMATE. [Suspect]
     Active Substance: TOPIRAMATE
     Indication: TENSION HEADACHE
     Dosage: TAKEN BY MOUTH
     Route: 048

REACTIONS (7)
  - Paraesthesia [None]
  - Ageusia [None]
  - Glossodynia [None]
  - Haemorrhoids [None]
  - Abnormal faeces [None]
  - Paraesthesia oral [None]
  - Cognitive disorder [None]
